FAERS Safety Report 5647730-1 (Version None)
Quarter: 2008Q1

REPORT INFORMATION
  Report Type: 
  Country: None (occurrence: None)
  Receive Date: 20080303
  Receipt Date: 20080220
  Transmission Date: 20080703
  Serious: Yes (Hospitalization, Other)
  Sender: FDA-Public Use
  Company Number: US-PFIZER INC-2008007184

PATIENT
  Sex: Male
  Weight: 117.27 kg

DRUGS (4)
  1. ZITHROMAX [Suspect]
     Indication: SINUSITIS
  2. CHANTIX [Suspect]
     Indication: EX-SMOKER
  3. ANTIBIOTICS [Suspect]
     Indication: SINUSITIS
  4. WARFARIN SODIUM [Concomitant]

REACTIONS (3)
  - DEEP VEIN THROMBOSIS [None]
  - INTERNATIONAL NORMALISED RATIO DECREASED [None]
  - MONOPLEGIA [None]
